FAERS Safety Report 7313602-X (Version None)
Quarter: 2011Q1

REPORT INFORMATION
  Report Type: 
  Country: None (occurrence: None)
  Receive Date: 20110225
  Receipt Date: 20110208
  Transmission Date: 20110831
  Serious: No
  Sender: FDA-Public Use
  Company Number: US-MYLANLABS-2011S1001486

PATIENT
  Age: 60 Year
  Sex: Female

DRUGS (2)
  1. M.V.I. [Concomitant]
     Route: 048
  2. ALENDRONATE SODIUM [Suspect]
     Indication: OSTEOPENIA
     Route: 048
     Dates: start: 20101101, end: 20101101

REACTIONS (2)
  - BONE PAIN [None]
  - DIZZINESS [None]
